FAERS Safety Report 5386954-8 (Version None)
Quarter: 2007Q3

REPORT INFORMATION
  Report Type: 
  Country: None (occurrence: None)
  Receive Date: 20070713
  Receipt Date: 20070702
  Transmission Date: 20080115
  Serious: Yes (Other)
  Sender: FDA-Public Use
  Company Number: US-PFIZER INC-2007055006

PATIENT
  Sex: Female
  Weight: 73.5 kg

DRUGS (2)
  1. LYRICA [Suspect]
     Indication: NEUROPATHY
  2. LYRICA [Suspect]
     Indication: SPINAL FRACTURE

REACTIONS (2)
  - SOMNOLENCE [None]
  - VIRAL INFECTION [None]
